FAERS Safety Report 19269747 (Version 1)
Quarter: 2021Q2

REPORT INFORMATION
  Report Type: Spontaneous
  Country: US (occurrence: US)
  Receive Date: 20210518
  Receipt Date: 20210518
  Transmission Date: 20210717
  Serious: Yes (Death, Hospitalization)
  Sender: FDA-Public Use
  Company Number: US-LANNETT COMPANY, INC.-US-2021LAN000156

PATIENT
  Age: 64 Year
  Sex: Female
  Weight: 122.45 kg

DRUGS (7)
  1. CORTICOSTEROIDS, TOPICAL [Concomitant]
     Indication: PRODUCT USED FOR UNKNOWN INDICATION
     Dosage: UNK
     Route: 061
     Dates: end: 20210120
  2. MIDODRINE [Concomitant]
     Active Substance: MIDODRINE
     Indication: ORTHOSTATIC HYPOTENSION
     Dosage: 10 MG, QD
     Route: 065
     Dates: start: 20200106, end: 20210120
  3. COSENTYX [Concomitant]
     Active Substance: SECUKINUMAB
     Indication: PSORIASIS
     Dosage: 300 MG, ONCE A MONTH
     Route: 065
     Dates: start: 20180613, end: 20210101
  4. ELIQUIS [Concomitant]
     Active Substance: APIXABAN
     Indication: ANTICOAGULANT THERAPY
     Dosage: 5 MG, QD
     Route: 065
     Dates: start: 20190408, end: 20210120
  5. CALCIPOTRIENE. [Concomitant]
     Active Substance: CALCIPOTRIENE
     Indication: PSORIASIS
     Dosage: UNK
     Route: 065
     Dates: end: 20210120
  6. COREG [Concomitant]
     Active Substance: CARVEDILOL
     Indication: HYPERTENSION
     Dosage: 25 MG, QD
     Route: 065
     Dates: start: 20150318, end: 20210120
  7. LEVOTHYROXINE SODIUM. [Suspect]
     Active Substance: LEVOTHYROXINE SODIUM
     Indication: ORTHOSTATIC HYPOTENSION
     Dosage: 10 MG, QD
     Route: 065
     Dates: start: 20200106, end: 20210120

REACTIONS (7)
  - Cardiac arrest [Fatal]
  - Hyperkalaemia [Fatal]
  - Bradycardia [Fatal]
  - Dyspnoea [Unknown]
  - Dehydration [Fatal]
  - Loss of consciousness [Unknown]
  - Respiratory arrest [Fatal]

NARRATIVE: CASE EVENT DATE: 202101
